FAERS Safety Report 21052161 (Version 1)
Quarter: 2022Q3

REPORT INFORMATION
  Report Type: Report from Study
  Country: US (occurrence: US)
  Receive Date: 20220707
  Receipt Date: 20220707
  Transmission Date: 20221026
  Serious: Yes (Other)
  Sender: FDA-Public Use
  Company Number: US-MYLANLABS-2022M1050601

PATIENT
  Sex: Female
  Weight: 79.38 kg

DRUGS (1)
  1. GLATIRAMER ACETATE [Suspect]
     Active Substance: GLATIRAMER ACETATE
     Indication: Relapsing-remitting multiple sclerosis
     Dosage: 40 MILLIGRAM, 3XW
     Route: 065
     Dates: start: 20220128

REACTIONS (5)
  - Immobile [Unknown]
  - Gait disturbance [Unknown]
  - Muscle atrophy [Unknown]
  - Fear of injection [Unknown]
  - Inappropriate schedule of product administration [Unknown]
